FAERS Safety Report 7737890-0 (Version None)
Quarter: 2011Q3

REPORT INFORMATION
  Report Type: 
  Country: None (occurrence: None)
  Receive Date: 20110908
  Receipt Date: 20110901
  Transmission Date: 20111222
  Serious: Yes (Other)
  Sender: FDA-Public Use
  Company Number: PHEH2011US03228

PATIENT
  Sex: Female

DRUGS (3)
  1. BLOOD PRESSURE MEDICATION [Concomitant]
     Dosage: 1/2 2X DAY
  2. RECLAST [Suspect]
     Dosage: UNK UKN, UNK
     Route: 042
     Dates: start: 20110729
  3. BONIVA [Suspect]
     Dosage: UNK UKN, UNK

REACTIONS (9)
  - VOMITING [None]
  - SINUSITIS [None]
  - HERPES ZOSTER [None]
  - NAUSEA [None]
  - PYREXIA [None]
  - ASTHENIA [None]
  - HEADACHE [None]
  - FLATULENCE [None]
  - PAIN [None]
